FAERS Safety Report 8968134 (Version 1)
Quarter: 2012Q4

REPORT INFORMATION
  Report Type: Spontaneous
  Country: US (occurrence: None)
  Receive Date: 20121214
  Receipt Date: 20121214
  Transmission Date: 20130627
  Serious: Yes (Death)
  Sender: FDA-Public Use
  Company Number: None

PATIENT
  Age: 66 Year
  Sex: Male

DRUGS (2)
  1. LUCENTIS [Suspect]
     Indication: VENOUS OCCLUSION
     Dosage: 1 every four weeks Intraocular
     Route: 031
     Dates: start: 20120801, end: 20121017
  2. LUCENTIS [Suspect]
     Indication: MACULAR EDEMA
     Dosage: 1 every four weeks Intraocular
     Route: 031
     Dates: start: 20120801, end: 20121017

REACTIONS (1)
  - No adverse event [None]
